FAERS Safety Report 16872036 (Version 1)
Quarter: 2019Q4

REPORT INFORMATION
  Report Type: Spontaneous
  Country: US (occurrence: US)
  Receive Date: 20191001
  Receipt Date: 20191001
  Transmission Date: 20200122
  Serious: No
  Sender: FDA-Public Use
  Company Number: None

PATIENT
  Age: 84 Year
  Sex: Male
  Weight: 104 kg

DRUGS (2)
  1. CAPECITABINE. [Suspect]
     Active Substance: CAPECITABINE
     Indication: COLON CANCER
     Dosage: 2000 MG ORAL BID 14D ON 7D OFF?
     Route: 048
     Dates: start: 20190816
  2. CAPECITABINE. [Suspect]
     Active Substance: CAPECITABINE
     Indication: COLON CANCER
     Dosage: 150 MG ORAL BID 14D ON 7D OFF?
     Route: 048
     Dates: start: 20190816

REACTIONS (1)
  - Chemical burn of skin [None]

NARRATIVE: CASE EVENT DATE: 20191001
